FAERS Safety Report 9543210 (Version 1)
Quarter: 2013Q3

REPORT INFORMATION
  Report Type: Spontaneous
  Country: US (occurrence: US)
  Receive Date: 20130923
  Receipt Date: 20130923
  Transmission Date: 20140515
  Serious: No
  Sender: FDA-Public Use
  Company Number: US-PURDUE-USA-2011-0079950

PATIENT
  Sex: Female

DRUGS (2)
  1. DILAUDID TABLET [Suspect]
     Indication: PAIN
     Dosage: 4 MG, DAILY
  2. METHADONE [Suspect]
     Indication: PAIN
     Dosage: 10 MG, TID

REACTIONS (1)
  - Drug withdrawal syndrome [Unknown]
